FAERS Safety Report 18873793 (Version 2)
Quarter: 2021Q2

REPORT INFORMATION
  Report Type: Spontaneous
  Country: JP (occurrence: JP)
  Receive Date: 20210210
  Receipt Date: 20210419
  Transmission Date: 20210717
  Serious: Yes (Other)
  Sender: FDA-Public Use
  Company Number: JP-BRISTOL-MYERS SQUIBB COMPANY-BMS-2021-013038

PATIENT

DRUGS (1)
  1. OPDIVO [Suspect]
     Active Substance: NIVOLUMAB
     Indication: MALIGNANT MELANOMA
     Dosage: 240 MG, Q2W
     Route: 041
     Dates: end: 20201015

REACTIONS (2)
  - Troponin increased [Not Recovered/Not Resolved]
  - Myocarditis [Unknown]

NARRATIVE: CASE EVENT DATE: 202010
